FAERS Safety Report 21409322 (Version 1)
Quarter: 2022Q4

REPORT INFORMATION
  Report Type: Spontaneous
  Country: GB (occurrence: GB)
  Receive Date: 20221004
  Receipt Date: 20221004
  Transmission Date: 20230113
  Serious: Yes (Other)
  Sender: FDA-Public Use
  Company Number: GB-ROCHE-3189035

PATIENT
  Age: 64 Year
  Sex: Male
  Weight: 145 kg

DRUGS (6)
  1. RITUXIMAB [Suspect]
     Active Substance: RITUXIMAB
     Indication: Diffuse large B-cell lymphoma
     Dosage: 1 DF, EVERY 3 WEEKS (1/MAR/2022)
     Route: 065
     Dates: start: 20220208, end: 20220604
  2. RITUXIMAB [Suspect]
     Active Substance: RITUXIMAB
     Dosage: 1 DF, EVERY 3 WEEKS(22/MAR/2022)
     Route: 065
     Dates: start: 20220208, end: 20220604
  3. RITUXIMAB [Suspect]
     Active Substance: RITUXIMAB
     Dosage: 1 DF, EVERY 3 WEEKS (12/APR/2022)
     Route: 065
     Dates: start: 20220208, end: 20220604
  4. RITUXIMAB [Suspect]
     Active Substance: RITUXIMAB
     Dosage: 1 DF, EVERY 3 WEEKS (3/MAR/2022)
     Route: 065
     Dates: start: 20220208, end: 20220604
  5. RITUXIMAB [Suspect]
     Active Substance: RITUXIMAB
     Dosage: 1 DF, EVERY 3 WEEKS (4/JUN/2022) RECENT DOSE WAS ADMINISTERED)
     Route: 065
     Dates: start: 20220208, end: 20220604
  6. POLIVY [Suspect]
     Active Substance: POLATUZUMAB VEDOTIN-PIIQ
     Indication: Diffuse large B-cell lymphoma
     Dosage: UNK
     Route: 065

REACTIONS (8)
  - Off label use [Unknown]
  - Abdominal pain upper [Unknown]
  - Hypertension [Unknown]
  - Night sweats [Unknown]
  - Arteriosclerosis coronary artery [Unknown]
  - Blood cholesterol increased [Unknown]
  - Glycosylated haemoglobin increased [Unknown]
  - Ejection fraction decreased [Unknown]
